FAERS Safety Report 6157897-7 (Version None)
Quarter: 2009Q2

REPORT INFORMATION
  Report Type: 
  Country: None (occurrence: None)
  Receive Date: 20090417
  Receipt Date: 20070308
  Transmission Date: 20091009
  Serious: Yes (Hospitalization, Other)
  Sender: FDA-Public Use
  Company Number: US-ASTRAZENECA-2006UW22264

PATIENT
  Age: 9217 Day
  Sex: Female
  Weight: 128.8 kg

DRUGS (38)
  1. SEROQUEL [Suspect]
     Indication: DEPRESSION
     Dosage: 25 TO 400 MG
     Route: 048
     Dates: start: 20031112, end: 20060111
  2. SEROQUEL [Suspect]
     Indication: AFFECTIVE DISORDER
     Dosage: 25 TO 400 MG
     Route: 048
     Dates: start: 20031112, end: 20060111
  3. SEROQUEL [Suspect]
     Indication: ANXIETY
     Dosage: 25 TO 400 MG
     Route: 048
     Dates: start: 20031112, end: 20060111
  4. SEROQUEL [Suspect]
     Indication: SLEEP DISORDER
     Dosage: 25 TO 400 MG
     Route: 048
     Dates: start: 20031112, end: 20060111
  5. PAXIL [Concomitant]
  6. TRAZODONE HYDROCHLORIDE [Concomitant]
  7. KLONOPIN [Concomitant]
  8. TOPAMAX [Concomitant]
  9. ABILIFY [Concomitant]
  10. LITHIUM CARBONATE [Concomitant]
  11. GEODON [Concomitant]
  12. PROZAC [Concomitant]
  13. VISTARIL [Concomitant]
  14. COGENTIN [Concomitant]
  15. ULTRAM [Concomitant]
  16. DIFLUCAN [Concomitant]
  17. HUMALOG [Concomitant]
  18. NOVOLIN R [Concomitant]
  19. ESKALITH [Concomitant]
  20. GLUCOPHAGE [Concomitant]
  21. PREDNISONE [Concomitant]
  22. PROTONIX [Concomitant]
  23. CENTRUM MULTIVITAMIN [Concomitant]
  24. MAGNESIUM OXIDE [Concomitant]
  25. PEPCID [Concomitant]
  26. SODIUM CHLORIDE [Concomitant]
  27. ACETAMINOPHEN [Concomitant]
  28. CLOTRIMAZOLE [Concomitant]
  29. LISINOPRIL [Concomitant]
  30. ALBUTEROL SULPHATE [Concomitant]
  31. PAROXETINE HCL [Concomitant]
  32. ADVAIR DISKCUS [Concomitant]
  33. HYDROXYZINE HYDROCHLORIDE [Concomitant]
  34. NAPROXEN SODIUM [Concomitant]
  35. HYDROXYZINE PAMOATE [Concomitant]
  36. HYDROCODONE BITARTRATE [Concomitant]
  37. ASPIRIN [Concomitant]
  38. FLUOXETINE HYDROCHLORIDE [Concomitant]

REACTIONS (35)
  - ABDOMINAL PAIN [None]
  - ACUTE SINUSITIS [None]
  - ADJUSTMENT DISORDER WITH MIXED ANXIETY AND DEPRESSED MOOD [None]
  - ASTHENIA [None]
  - BACK PAIN [None]
  - BIPOLAR DISORDER [None]
  - BORDERLINE PERSONALITY DISORDER [None]
  - CHEST PAIN [None]
  - DENTAL CARIES [None]
  - DEPRESSION [None]
  - DIABETES MELLITUS [None]
  - DRUG DEPENDENCE [None]
  - DYSPNOEA [None]
  - HEADACHE [None]
  - HYPOAESTHESIA [None]
  - LOSS OF CONSCIOUSNESS [None]
  - MAJOR DEPRESSION [None]
  - MENTAL STATUS CHANGES [None]
  - MYALGIA [None]
  - NECK PAIN [None]
  - OBESITY [None]
  - OVARIAN CYST [None]
  - OVERDOSE [None]
  - PAIN IN EXTREMITY [None]
  - PALPITATIONS [None]
  - PELVIC PAIN [None]
  - PHARYNGITIS [None]
  - PNEUMONIA HAEMOPHILUS [None]
  - POST-TRAUMATIC STRESS DISORDER [None]
  - RESPIRATORY FAILURE [None]
  - SCOLIOSIS [None]
  - SUICIDAL IDEATION [None]
  - SUICIDE ATTEMPT [None]
  - SYNCOPE [None]
  - VOMITING [None]
